FAERS Safety Report 7183168-6 (Version None)
Quarter: 2010Q4

REPORT INFORMATION
  Report Type: 
  Country: None (occurrence: None)
  Receive Date: 20101222
  Receipt Date: 20101207
  Transmission Date: 20110411
  Serious: Yes (Hospitalization)
  Sender: FDA-Public Use
  Company Number: US-RANBAXY-2010US-40577

PATIENT

DRUGS (25)
  1. VERAPAMIL [Suspect]
     Indication: HYPERTENSION
     Dosage: 240 MG, QD
     Route: 048
     Dates: start: 20031209
  2. VERAPAMIL [Suspect]
     Dosage: 120 MG, 1 EVERY NIGHT
     Route: 048
  3. COKENZEN [Suspect]
     Indication: HYPERTENSION
     Dosage: UNK , UNK
     Route: 048
     Dates: start: 20090730, end: 20100127
  4. CLOPIDOGREL [Suspect]
     Indication: ACUTE CORONARY SYNDROME
     Dosage: 275 MG, UNK
     Route: 048
     Dates: start: 20050117, end: 20100901
  5. CLOPIDOGREL [Suspect]
     Indication: CEREBROVASCULAR ACCIDENT
  6. EZETIMIBE/SIMVASTATIN [Suspect]
     Indication: DYSLIPIDAEMIA
     Dosage: UNK
     Route: 048
     Dates: start: 20070423
  7. EZETIMIBE/SIMVASTATIN [Suspect]
     Indication: CEREBROVASCULAR ACCIDENT
  8. EZETIMIBE/SIMVASTATIN [Suspect]
     Indication: ACUTE CORONARY SYNDROME
  9. ISOPTIN [Suspect]
     Indication: HYPERTENSION
     Dosage: UNK
     Route: 048
     Dates: start: 20090730, end: 20100127
  10. GABAPENTINE [Concomitant]
     Indication: PRODUCT USED FOR UNKNOWN INDICATION
     Dosage: UNK, UNK
     Route: 065
  11. INDAPAMIDE [Concomitant]
     Indication: PRODUCT USED FOR UNKNOWN INDICATION
     Dosage: UNK, UNK
     Route: 065
  12. TRIMETHAZIDINE HYDROCHLORIDE [Concomitant]
     Indication: PRODUCT USED FOR UNKNOWN INDICATION
     Dosage: 35 MG, BID
     Route: 065
  13. ETIFOXINE [Concomitant]
     Indication: PRODUCT USED FOR UNKNOWN INDICATION
     Dosage: 1 DOSAGE FORM 4 IN 1 D
     Route: 048
  14. RILMENIDINE [Concomitant]
     Indication: PRODUCT USED FOR UNKNOWN INDICATION
     Dosage: 1 MG, BID
     Route: 048
  15. RABEPRAZOLE SODIUM [Concomitant]
     Indication: PRODUCT USED FOR UNKNOWN INDICATION
     Dosage: 20 MG, QD
     Route: 048
  16. EBASTINE [Concomitant]
     Indication: PRODUCT USED FOR UNKNOWN INDICATION
     Dosage: 1 DOSAGE FOR 1 IN 1 DAY
     Route: 048
  17. MONTELUKAST SODIUM [Concomitant]
     Indication: ASTHMA
     Dosage: 1 TABLET 1 IN 1 D
     Route: 048
  18. ACETYLSALICYLATE LYSINE [Concomitant]
     Indication: CEREBROVASCULAR ACCIDENT
     Dosage: 160 MG, QD
     Route: 048
  19. ACETYLSALICYLATE LYSINE [Concomitant]
     Indication: ACUTE CORONARY SYNDROME
  20. PROPOFAN [Concomitant]
     Indication: PRODUCT USED FOR UNKNOWN INDICATION
     Dosage: 6 DOSAGE FORMS (1 DOSAGE
     Route: 048
  21. BUDESONIDE W/FORMOTEROL FUMARATE  (INHALANT) [Concomitant]
     Indication: ASTHMA
     Dosage: 800 UG, BID
     Route: 055
  22. NIMESULIDE [Concomitant]
     Indication: ARTHRALGIA
     Dosage: UNK
     Route: 048
     Dates: start: 20100816
  23. GLUCOSAMINE [Concomitant]
     Indication: ARTHRALGIA
     Dosage: UNK
     Route: 048
     Dates: start: 20100816
  24. IRBESARTAN [Concomitant]
     Indication: HYPERTENSION
     Dosage: 1 DOSAGE FORM, 1 IN 1 D
     Route: 048
     Dates: start: 20100128, end: 20100601
  25. VERAPAMIL [Concomitant]
     Indication: PRODUCT USED FOR UNKNOWN INDICATION
     Dosage: UNK
     Route: 048
     Dates: start: 20100601

REACTIONS (1)
  - LICHEN PLANUS [None]
